FAERS Safety Report 11494178 (Version 1)
Quarter: 2015Q3

REPORT INFORMATION
  Report Type: Spontaneous
  Country: US (occurrence: US)
  Receive Date: 20150911
  Receipt Date: 20150911
  Transmission Date: 20151125
  Serious: No
  Sender: FDA-Public Use
  Company Number: US-ROCHE-799836

PATIENT
  Sex: Female

DRUGS (5)
  1. TELAPREVIR [Suspect]
     Active Substance: TELAPREVIR
     Indication: CHRONIC HEPATITIS C
     Route: 065
     Dates: start: 20110912
  2. NEUPOGEN [Concomitant]
     Active Substance: FILGRASTIM
     Route: 065
  3. PEGASYS [Suspect]
     Active Substance: PEGINTERFERON ALFA-2A
     Indication: CHRONIC HEPATITIS C
     Route: 065
  4. RIBAVIRIN. [Suspect]
     Active Substance: RIBAVIRIN
     Indication: CHRONIC HEPATITIS C
     Route: 065
  5. RIBAVIRIN. [Suspect]
     Active Substance: RIBAVIRIN
     Route: 065

REACTIONS (6)
  - Laceration [Unknown]
  - Haemoglobin decreased [Unknown]
  - Rash macular [Recovered/Resolved]
  - White blood cell count decreased [Unknown]
  - Facial pain [Unknown]
  - Product quality issue [Unknown]
